FAERS Safety Report 5957618-4 (Version None)
Quarter: 2008Q4

REPORT INFORMATION
  Report Type: 
  Country: None (occurrence: None)
  Receive Date: 20081110
  Receipt Date: 20081022
  Transmission Date: 20090506
  Serious: Yes (Hospitalization)
  Sender: FDA-Public Use
  Company Number: B0544513A

PATIENT
  Age: 41 Year
  Sex: Male

DRUGS (1)
  1. FLOLAN [Suspect]
     Indication: PULMONARY HYPERTENSION
     Dosage: INTRAVENOUS
     Route: 042

REACTIONS (6)
  - BACTERAEMIA [None]
  - CATHETER SITE ERYTHEMA [None]
  - DIZZINESS [None]
  - HYPERHIDROSIS [None]
  - MICROCOCCUS INFECTION [None]
  - PAIN [None]
